FAERS Safety Report 23597375 (Version 1)
Quarter: 2024Q1

REPORT INFORMATION
  Report Type: Spontaneous
  Country: CA (occurrence: CA)
  Receive Date: 20240305
  Receipt Date: 20240305
  Transmission Date: 20240410
  Serious: Yes (Other)
  Sender: FDA-Public Use
  Company Number: CA-AstraZeneca-2024A048812

PATIENT
  Age: 54 Year
  Sex: Female
  Weight: 61 kg

DRUGS (1)
  1. TRASTUZUMAB DERUXTECAN [Suspect]
     Active Substance: TRASTUZUMAB DERUXTECAN
     Indication: HER2 positive breast cancer
     Dosage: 335 MG, ONCE EVERY 3 WK
     Route: 042

REACTIONS (6)
  - Back pain [Unknown]
  - Facial discomfort [Unknown]
  - Somnolence [Unknown]
  - Dyspnoea [Unknown]
  - Flushing [Unknown]
  - Off label use [Unknown]
